FAERS Safety Report 6814601-4 (Version None)
Quarter: 2010Q3

REPORT INFORMATION
  Report Type: 
  Country: None (occurrence: None)
  Receive Date: 20100702
  Receipt Date: 20100629
  Transmission Date: 20110219
  Serious: Yes (Other)
  Sender: FDA-Public Use
  Company Number: A0854112A

PATIENT
  Age: 68 Year
  Sex: Female

DRUGS (1)
  1. ALLI [Suspect]
     Indication: WEIGHT LOSS DIET
     Dates: start: 20090101, end: 20100101

REACTIONS (4)
  - CAROTID ENDARTERECTOMY [None]
  - HEPATIC ENZYME INCREASED [None]
  - LIVER INJURY [None]
  - TRANSIENT ISCHAEMIC ATTACK [None]
